FAERS Safety Report 15208968 (Version 4)
Quarter: 2018Q4

REPORT INFORMATION
  Report Type: Spontaneous
  Country: GB (occurrence: GB)
  Receive Date: 20180727
  Receipt Date: 20181012
  Transmission Date: 20190204
  Serious: Yes (Other)
  Sender: FDA-Public Use
  Company Number: GB-GLENMARK PHARMACEUTICALS-2018GMK036641

PATIENT

DRUGS (2)
  1. ZOLMITRIPTAN 5MG ORODISPERIBLE TABLETS [Suspect]
     Active Substance: ZOLMITRIPTAN
     Indication: MIGRAINE
     Dosage: UNK UNK, OD
     Route: 065
     Dates: start: 201804
  2. LEVOTHYROXINE. [Concomitant]
     Active Substance: LEVOTHYROXINE
     Indication: THYROID DISORDER
     Dosage: UNK
     Route: 065

REACTIONS (6)
  - Swollen tongue [Recovered/Resolved]
  - Product dose omission [Unknown]
  - Pruritus [Recovered/Resolved]
  - Expired product administered [Unknown]
  - Erythema [Recovered/Resolved]
  - Pain in extremity [Recovered/Resolved]

NARRATIVE: CASE EVENT DATE: 201804
